FAERS Safety Report 14288121 (Version 5)
Quarter: 2020Q3

REPORT INFORMATION
  Report Type: Report from Study
  Country: US (occurrence: US)
  Receive Date: 20171214
  Receipt Date: 20200610
  Transmission Date: 20201105
  Serious: Yes (Hospitalization)
  Sender: FDA-Public Use
  Company Number: US-ASTRAZENECA-2017SF24745

PATIENT
  Age: 56 Year
  Sex: Male
  Weight: 105.8 kg

DRUGS (16)
  1. PANCRELIPASE,LIP?PROT?AMYL [Concomitant]
     Indication: PANCREATIC DISORDER
     Route: 048
     Dates: start: 20161221
  2. VANCOCIN [Suspect]
     Active Substance: VANCOMYCIN HYDROCHLORIDE
     Indication: SEPSIS
     Dosage: 1500 MG/295 ML NS IVPB
     Route: 042
     Dates: start: 20171205
  3. LORAZEPAM. [Concomitant]
     Active Substance: LORAZEPAM
     Indication: ANXIETY
     Dosage: 1 MG
     Route: 048
     Dates: start: 20161221
  4. PAROXETINE. [Concomitant]
     Active Substance: PAROXETINE
     Indication: DEPRESSION
     Dosage: 20 MG
     Route: 048
     Dates: start: 20161209
  5. POTASSIUM [Concomitant]
     Active Substance: POTASSIUM
     Indication: HYPOKALAEMIA
     Dosage: 40 MEQ
     Route: 065
     Dates: start: 20160126
  6. MEDI4736 [Suspect]
     Active Substance: DURVALUMAB
     Indication: COLORECTAL CANCER METASTATIC
     Route: 042
     Dates: start: 20161221
  7. VANCOCIN [Suspect]
     Active Substance: VANCOMYCIN HYDROCHLORIDE
     Indication: SEPSIS
     Dosage: MG
     Route: 042
     Dates: start: 20170414, end: 20170415
  8. NIFEREX [Concomitant]
     Indication: IRON DEFICIENCY
     Dosage: 150 MG
     Route: 048
     Dates: start: 20170105
  9. VANCOCIN [Suspect]
     Active Substance: VANCOMYCIN HYDROCHLORIDE
     Indication: SEPSIS
     Route: 042
     Dates: start: 20171122, end: 20171127
  10. PAROXETINE. [Concomitant]
     Active Substance: PAROXETINE
     Indication: ANXIETY
     Dosage: 20 MG
     Route: 048
     Dates: start: 20161209
  11. VANCOCIN [Suspect]
     Active Substance: VANCOMYCIN HYDROCHLORIDE
     Indication: SEPSIS
     Dosage: 2000 MG IN 5 % DEXTROSE 295 ML PRE?MADE IVPB
     Route: 042
     Dates: start: 20170113
  12. MELOXICAM. [Concomitant]
     Active Substance: MELOXICAM
     Indication: ARTHRALGIA
     Dosage: 15 MG
     Route: 048
     Dates: start: 20170104
  13. OLECLUMAB. [Suspect]
     Active Substance: OLECLUMAB
     Indication: COLORECTAL CANCER METASTATIC
     Route: 042
     Dates: start: 20161221
  14. VANCOCIN [Suspect]
     Active Substance: VANCOMYCIN HYDROCHLORIDE
     Indication: SEPSIS
     Dosage: 2000 MG IN 5 % DEXTROSE 295 ML PRE?MADE IVPB
     Route: 042
     Dates: start: 20171205
  15. DIPHENOXYLATE?ATROPINE [Concomitant]
     Active Substance: ATROPINE\DIPHENOXYLATE
     Indication: DIARRHOEA
     Route: 048
     Dates: start: 20161221
  16. CREON [Concomitant]
     Active Substance: PANCRELIPASE AMYLASE\PANCRELIPASE LIPASE\PANCRELIPASE PROTEASE
     Indication: PANCREATIC ENZYMES
     Route: 048
     Dates: start: 20161227

REACTIONS (2)
  - Thrombocytopenia [Recovered/Resolved]
  - Anaemia [Not Recovered/Not Resolved]

NARRATIVE: CASE EVENT DATE: 20171107
